FAERS Safety Report 11214023 (Version 1)
Quarter: 2015Q2

REPORT INFORMATION
  Report Type: Spontaneous
  Country: US (occurrence: None)
  Receive Date: 20150622
  Receipt Date: 20150622
  Transmission Date: 20150821
  Serious: Yes (Disabling, Other)
  Sender: FDA-Public Use
  Company Number: None

PATIENT
  Age: 46 Year
  Sex: Female
  Weight: 52.16 kg

DRUGS (10)
  1. REQUIP [Concomitant]
     Active Substance: ROPINIROLE HYDROCHLORIDE
  2. MELATONIN [Concomitant]
     Active Substance: MELATONIN
  3. ADDERALL XR [Concomitant]
     Active Substance: AMPHETAMINE ASPARTATE\AMPHETAMINE SULFATE\DEXTROAMPHETAMINE SACCHARATE\DEXTROAMPHETAMINE SULFATE
  4. EPIDURAL [Concomitant]
  5. SOMA [Concomitant]
     Active Substance: CARISOPRODOL
  6. SAVELLA [Suspect]
     Active Substance: MILNACIPRAN HYDROCHLORIDE
     Indication: FIBROMYALGIA
     Dosage: 2 PILLS, 1 IN AM AND 1 PM
     Route: 048
     Dates: start: 20150513, end: 20150611
  7. ADDERALK [Concomitant]
  8. SYNTHROID [Concomitant]
     Active Substance: LEVOTHYROXINE SODIUM
  9. CLONAZAPEM [Concomitant]
  10. PREDNISONE. [Concomitant]
     Active Substance: PREDNISONE

REACTIONS (26)
  - Fatigue [None]
  - Dizziness [None]
  - Dyspnoea [None]
  - Thinking abnormal [None]
  - Nausea [None]
  - Headache [None]
  - Vomiting [None]
  - Flushing [None]
  - No therapeutic response [None]
  - Hyperhidrosis [None]
  - Influenza like illness [None]
  - Anger [None]
  - Abdominal pain upper [None]
  - Dry mouth [None]
  - Weight decreased [None]
  - Mood altered [None]
  - Screaming [None]
  - Crying [None]
  - Abnormal behaviour [None]
  - Activities of daily living impaired [None]
  - Diarrhoea [None]
  - Agitation [None]
  - Palpitations [None]
  - Aggression [None]
  - Impaired work ability [None]
  - Insomnia [None]

NARRATIVE: CASE EVENT DATE: 20150608
